FAERS Safety Report 8839491 (Version 1)
Quarter: 2012Q4

REPORT INFORMATION
  Report Type: 
  Country: US (occurrence: US)
  Receive Date: 20121015
  Receipt Date: 20121015
  Transmission Date: 20130627
  Serious: Yes (Other)
  Sender: FDA-Public Use
  Company Number: US-JNJFOC-20121006271

PATIENT
  Age: 1 None

DRUGS (4)
  1. CISAPRIDE [Suspect]
     Indication: GASTROINTESTINAL MOTILITY DISORDER
     Dosage: 0.1 to 0.2 mg/kg per dose for 3 to 4 doses per day
     Route: 065
  2. CISAPRIDE [Suspect]
     Indication: GASTROINTESTINAL MOTILITY DISORDER
     Dosage: or a maximum 10 mg per dose 4 times per day
     Route: 065
  3. CISAPRIDE [Suspect]
     Indication: SHORT-BOWEL SYNDROME
     Dosage: 0.1 to 0.2 mg/kg per dose for 3 to 4 doses per day
     Route: 065
  4. CISAPRIDE [Suspect]
     Indication: SHORT-BOWEL SYNDROME
     Dosage: or a maximum 10 mg per dose 4 times per day
     Route: 065

REACTIONS (1)
  - Gastrointestinal haemorrhage [Unknown]
